FAERS Safety Report 13438892 (Version 1)
Quarter: 2017Q2

REPORT INFORMATION
  Report Type: Spontaneous
  Country: US (occurrence: US)
  Receive Date: 20170413
  Receipt Date: 20170413
  Transmission Date: 20170830
  Serious: No
  Sender: FDA-Public Use
  Company Number: US-ROCHE-638257

PATIENT
  Sex: Male

DRUGS (3)
  1. XENICAL [Suspect]
     Active Substance: ORLISTAT
     Route: 048
  2. XENICAL [Suspect]
     Active Substance: ORLISTAT
     Indication: PRODUCT USED FOR UNKNOWN INDICATION
     Route: 048
  3. LIPITOR [Concomitant]
     Active Substance: ATORVASTATIN CALCIUM
     Dosage: FREQUENCY: DAILY
     Route: 065

REACTIONS (4)
  - Product counterfeit [Unknown]
  - Flatulence [Unknown]
  - Drug ineffective [Unknown]
  - Steatorrhoea [Unknown]

NARRATIVE: CASE EVENT DATE: 2003
